FAERS Safety Report 10083332 (Version 1)
Quarter: 2014Q2

REPORT INFORMATION
  Report Type: Spontaneous
  Country: US (occurrence: None)
  Receive Date: 20140415
  Receipt Date: 20140415
  Transmission Date: 20141212
  Serious: Yes (Life-Threatening, Hospitalization, Other)
  Sender: FDA-Public Use
  Company Number: None

PATIENT
  Age: 56 Year
  Sex: Female
  Weight: 58.97 kg

DRUGS (1)
  1. RADIOACTIVE IODINE SOLUTION [Suspect]

REACTIONS (24)
  - Malaise [None]
  - Epstein-Barr virus infection [None]
  - Weight decreased [None]
  - Pyrexia [None]
  - Pain [None]
  - Dyspnoea [None]
  - Vision blurred [None]
  - Tinnitus [None]
  - Headache [None]
  - Nausea [None]
  - Dizziness [None]
  - Insomnia [None]
  - Feeling abnormal [None]
  - Disturbance in attention [None]
  - Dysarthria [None]
  - Depression [None]
  - Suicidal ideation [None]
  - Chronic fatigue syndrome [None]
  - Multiple allergies [None]
  - Influenza like illness [None]
  - Hangover [None]
  - Thinking abnormal [None]
  - Infection [None]
  - Viral infection [None]
